FAERS Safety Report 25996772 (Version 1)
Quarter: 2025Q4

REPORT INFORMATION
  Report Type: Spontaneous
  Country: US (occurrence: US)
  Receive Date: 20251104
  Receipt Date: 20251104
  Transmission Date: 20260118
  Serious: Yes (Hospitalization, Other)
  Sender: NOVO NORDISK
  Company Number: US-NOVOPROD-1545137

PATIENT

DRUGS (1)
  1. LEVEMIR [Suspect]
     Active Substance: INSULIN DETEMIR
     Indication: Product used for unknown indication
     Dosage: 28 IU

REACTIONS (6)
  - Coronary artery occlusion [Unknown]
  - Cerebrovascular accident [Unknown]
  - Coma [Unknown]
  - Myocardial infarction [Unknown]
  - Disability [Unknown]
  - Illness [Unknown]
